FAERS Safety Report 13883861 (Version 1)
Quarter: 2017Q3

REPORT INFORMATION
  Report Type: Spontaneous
  Country: GB (occurrence: GB)
  Receive Date: 20170821
  Receipt Date: 20170821
  Transmission Date: 20171127
  Serious: Yes (Life-Threatening, Other)
  Sender: FDA-Public Use
  Company Number: GB-PERRIGO-17GB025656

PATIENT

DRUGS (2)
  1. RANITIDINE HYDROCHLORIDE. [Suspect]
     Active Substance: RANITIDINE HYDROCHLORIDE
     Indication: EHLERS-DANLOS SYNDROME
     Dosage: 300 MG, QD
     Route: 048
  2. RANITIDINE HYDROCHLORIDE. [Suspect]
     Active Substance: RANITIDINE HYDROCHLORIDE
     Indication: HYPERMOBILITY SYNDROME
     Dosage: 300 MG, BID
     Route: 048

REACTIONS (2)
  - Anaphylactic reaction [Unknown]
  - Withdrawal syndrome [Unknown]
